FAERS Safety Report 6062377-3 (Version None)
Quarter: 2009Q1

REPORT INFORMATION
  Report Type: 
  Country: None (occurrence: None)
  Receive Date: 20090202
  Receipt Date: 20090202
  Transmission Date: 20090719
  Serious: No
  Sender: FDA-Public Use
  Company Number: None

PATIENT
  Age: 62 Year
  Sex: Male
  Weight: 68 kg

DRUGS (1)
  1. VARENICLINE [Suspect]
     Dosage: 1MG MG BID PO
     Route: 048
     Dates: start: 20080205, end: 20080304

REACTIONS (1)
  - NAUSEA [None]
